FAERS Safety Report 8880289 (Version 1)
Quarter: 2012Q4

REPORT INFORMATION
  Report Type: 
  Country: ES (occurrence: ES)
  Receive Date: 20121031
  Receipt Date: 20121031
  Transmission Date: 20130627
  Serious: Yes (Other)
  Sender: FDA-Public Use
  Company Number: PHHY2012ES096847

PATIENT
  Age: 27 Year
  Sex: Male

DRUGS (3)
  1. OXCARBAZEPINE [Suspect]
     Indication: MENTAL DISORDER
  2. CLONAZEPAM [Suspect]
     Indication: MENTAL DISORDER
  3. OLANZAPINE [Suspect]
     Indication: MENTAL DISORDER

REACTIONS (9)
  - Drug reaction with eosinophilia and systemic symptoms [Unknown]
  - Renal impairment [Unknown]
  - Liver disorder [Unknown]
  - Lung disorder [Unknown]
  - Upper respiratory tract infection [Unknown]
  - Pyrexia [Unknown]
  - Blood immunoglobulin G increased [Unknown]
  - Procalcitonin increased [Unknown]
  - Skin disorder [Unknown]
